FAERS Safety Report 5370767-7 (Version None)
Quarter: 2007Q2

REPORT INFORMATION
  Report Type: 
  Country: None (occurrence: None)
  Receive Date: 20070626
  Receipt Date: 20070621
  Transmission Date: 20071010
  Serious: Yes (Other)
  Sender: FDA-Public Use
  Company Number: A0659771A

PATIENT
  Age: 3 Year
  Sex: Female
  Weight: 15 kg

DRUGS (2)
  1. CEFUROXIME [Suspect]
     Route: 048
     Dates: start: 20070620
  2. TYLENOL [Concomitant]
     Dates: start: 20070619

REACTIONS (1)
  - GASTROINTESTINAL HAEMORRHAGE [None]
